FAERS Safety Report 16442206 (Version 1)
Quarter: 2019Q2

REPORT INFORMATION
  Report Type: Report from Study
  Country: None (occurrence: US)
  Receive Date: 20190617
  Receipt Date: 20190617
  Transmission Date: 20190711
  Serious: No
  Sender: FDA-Public Use
  Company Number: US-US WORLDMEDS, LLC-USW201902-000265

PATIENT
  Age: 76 Year
  Sex: Female

DRUGS (1)
  1. APOKYN [Suspect]
     Active Substance: APOMORPHINE HYDROCHLORIDE
     Route: 058
     Dates: start: 201811

REACTIONS (3)
  - Abdominal discomfort [Unknown]
  - Headache [Unknown]
  - Palpitations [Unknown]

NARRATIVE: CASE EVENT DATE: 20190204
